FAERS Safety Report 7348879-8 (Version None)
Quarter: 2011Q1

REPORT INFORMATION
  Report Type: 
  Country: None (occurrence: None)
  Receive Date: 20110314
  Receipt Date: 20110302
  Transmission Date: 20110831
  Serious: Yes (Hospitalization)
  Sender: FDA-Public Use
  Company Number: US-ELI_LILLY_AND_COMPANY-US201009001846

PATIENT
  Sex: Female

DRUGS (10)
  1. FORTEO [Suspect]
     Dosage: 20 UG, DAILY (1/D)
  2. METFORMIN [Concomitant]
  3. FORTEO [Suspect]
     Indication: OSTEOPOROSIS
     Dosage: 20 UG, DAILY (1/D)
     Dates: start: 20100201
  4. LISINOPRIL [Concomitant]
  5. NORVASC [Concomitant]
  6. ZOCOR [Concomitant]
  7. SYNTHROID [Concomitant]
  8. FORTEO [Suspect]
     Dosage: 20 UG, DAILY (1/D)
     Dates: end: 20110111
  9. FORTEO [Suspect]
     Dosage: 20 UG, DAILY (1/D)
     Dates: start: 20110228
  10. ANTIHYPERTENSIVES [Concomitant]
     Indication: AORTIC CALCIFICATION

REACTIONS (9)
  - DYSPNOEA [None]
  - INFLUENZA LIKE ILLNESS [None]
  - ADVERSE DRUG REACTION [None]
  - DIARRHOEA [None]
  - AORTIC CALCIFICATION [None]
  - SWELLING FACE [None]
  - CHEST DISCOMFORT [None]
  - WEIGHT INCREASED [None]
  - NAUSEA [None]
